FAERS Safety Report 15599380 (Version 5)
Quarter: 2018Q4

REPORT INFORMATION
  Report Type: Spontaneous
  Country: JP (occurrence: JP)
  Receive Date: 20181108
  Receipt Date: 20181228
  Transmission Date: 20190205
  Serious: Yes (Hospitalization, Other)
  Sender: FDA-Public Use
  Company Number: JP-ELI_LILLY_AND_COMPANY-JP201811002151

PATIENT
  Age: 64 Year
  Sex: Female

DRUGS (4)
  1. LONSURF [Suspect]
     Active Substance: TIPIRACIL HYDROCHLORIDE\TRIFLURIDINE
     Indication: COLORECTAL CANCER METASTATIC
     Dosage: 50 MG, BID
     Route: 041
     Dates: start: 20181017, end: 20181026
  2. ERBITUX [Suspect]
     Active Substance: CETUXIMAB
     Dosage: 345 MG, WEEKLY (1/W)
     Route: 041
     Dates: start: 20181027, end: 20181031
  3. ERBITUX [Suspect]
     Active Substance: CETUXIMAB
     Indication: COLORECTAL CANCER METASTATIC
     Dosage: 552 MG, UNKNOWN
     Route: 041
     Dates: start: 20181017
  4. LONSURF [Suspect]
     Active Substance: TIPIRACIL HYDROCHLORIDE\TRIFLURIDINE
     Dosage: UNK UNK, UNKNOWN
     Route: 048
     Dates: start: 20181027

REACTIONS (6)
  - Off label use [Unknown]
  - Malaise [Recovering/Resolving]
  - Somnolence [Recovered/Resolved]
  - Decreased appetite [Recovering/Resolving]
  - Blood pressure decreased [Recovered/Resolved]
  - Pneumonia [Recovering/Resolving]

NARRATIVE: CASE EVENT DATE: 20181026
